FAERS Safety Report 7410618-X (Version None)
Quarter: 2011Q1

REPORT INFORMATION
  Report Type: 
  Country: None (occurrence: None)
  Receive Date: 20110302
  Receipt Date: 20110118
  Transmission Date: 20110831
  Serious: No
  Sender: FDA-Public Use
  Company Number: 025728

PATIENT
  Sex: Female
  Weight: 88 kg

DRUGS (22)
  1. NASACORT AQ [Concomitant]
  2. ENTOCORT EC [Concomitant]
  3. ACETAMINOPHEN [Concomitant]
  4. LEVBID [Concomitant]
  5. ASPIRIN [Concomitant]
  6. CIMZIA [Suspect]
     Indication: CROHN'S DISEASE
     Dosage: 400 MG 1X/MONTH SUBCUTANEOUS
     Route: 058
     Dates: start: 20100506
  7. LIPITOR [Concomitant]
  8. PANTOPRAZOLE [Concomitant]
  9. PROVENTIL-HFA [Concomitant]
  10. NORVASC [Concomitant]
  11. ALLEGRA [Concomitant]
  12. PROMETHAZINE [Concomitant]
  13. DETROL LA [Concomitant]
  14. LEXAPRO [Concomitant]
  15. NOVOLOG [Concomitant]
  16. ADVAIR HFA [Concomitant]
  17. TOPROL-XL [Concomitant]
  18. CODIOVAN [Concomitant]
  19. NITROGLYCERIN [Concomitant]
  20. CALCIUM [Concomitant]
  21. LORAZEPAM [Concomitant]
  22. LEVEMIR [Concomitant]

REACTIONS (5)
  - PAIN [None]
  - RASH [None]
  - HYPERAESTHESIA [None]
  - ACNE [None]
  - ARTHRALGIA [None]
